FAERS Safety Report 20431536 (Version 1)
Quarter: 2022Q1

REPORT INFORMATION
  Report Type: Spontaneous
  Country: US (occurrence: US)
  Receive Date: 20220204
  Receipt Date: 20220204
  Transmission Date: 20220423
  Serious: No
  Sender: FDA-Public Use
  Company Number: US-JNJFOC-20220156932

PATIENT
  Age: 5 Year
  Sex: Male
  Weight: 15.890 kg

DRUGS (3)
  1. ZYRTEC [Suspect]
     Active Substance: CETIRIZINE HYDROCHLORIDE
     Indication: Vaccination complication
     Route: 065
  2. COVID-19 VACCINE [Concomitant]
     Indication: Immunisation
     Dosage: FIRST SHOT
     Route: 030
     Dates: start: 20211227
  3. COVID-19 VACCINE [Concomitant]
     Dosage: 2ND SHOT
     Route: 030
     Dates: start: 20220117

REACTIONS (2)
  - Product use in unapproved indication [Unknown]
  - Product administered to patient of inappropriate age [Unknown]
